FAERS Safety Report 7261671-8 (Version None)
Quarter: 2011Q1

REPORT INFORMATION
  Report Type: 
  Country: None (occurrence: None)
  Receive Date: 20110130
  Receipt Date: 20101103
  Transmission Date: 20110831
  Serious: No
  Sender: FDA-Public Use
  Company Number: US-ABBOTT-10P-163-0683037-00

PATIENT
  Sex: Female
  Weight: 52.21 kg

DRUGS (7)
  1. PREDNISONE [Concomitant]
     Indication: CROHN'S DISEASE
  2. HUMIRA [Suspect]
     Indication: CROHN'S DISEASE
     Dates: start: 20070101, end: 20080101
  3. HUMIRA [Suspect]
     Dates: start: 20101102, end: 20101102
  4. LEXAPRO [Concomitant]
     Indication: DEPRESSION
  5. PRENATAL VITAMINS [Concomitant]
     Indication: VITAMIN SUPPLEMENTATION
  6. LIALDA [Concomitant]
     Indication: CROHN'S DISEASE
  7. IMURAN [Concomitant]
     Indication: CROHN'S DISEASE

REACTIONS (4)
  - INJECTION SITE HAEMORRHAGE [None]
  - DEVICE MALFUNCTION [None]
  - DRUG DOSE OMISSION [None]
  - INJURY ASSOCIATED WITH DEVICE [None]
